FAERS Safety Report 17248051 (Version 2)
Quarter: 2020Q1

REPORT INFORMATION
  Report Type: Spontaneous
  Country: US (occurrence: US)
  Receive Date: 20200108
  Receipt Date: 20200117
  Transmission Date: 20200409
  Serious: No
  Sender: FDA-Public Use
  Company Number: US-SA-2020SA004791

PATIENT
  Age: 54 Year
  Sex: Female

DRUGS (5)
  1. HYDROXYZINE [HYDROXYZINE HYDROCHLORIDE] [Concomitant]
     Active Substance: HYDROXYZINE HYDROCHLORIDE
  2. ESZOPICLONE. [Concomitant]
     Active Substance: ESZOPICLONE
  3. ERYTHROMYCIN. [Concomitant]
     Active Substance: ERYTHROMYCIN
  4. POLYMYXIN [Concomitant]
     Active Substance: POLYMYXIN
  5. DUPIXENT [Suspect]
     Active Substance: DUPILUMAB
     Indication: DERMATITIS ATOPIC
     Dosage: 300 MG, QOW
     Route: 058
     Dates: start: 20190627

REACTIONS (6)
  - Rash [Not Recovered/Not Resolved]
  - Skin irritation [Not Recovered/Not Resolved]
  - Eye infection [Not Recovered/Not Resolved]
  - Superficial injury of eye [Not Recovered/Not Resolved]
  - Rash [Recovered/Resolved]
  - Dermatitis atopic [Recovered/Resolved]

NARRATIVE: CASE EVENT DATE: 2019
